FAERS Safety Report 5095289-2 (Version None)
Quarter: 2006Q3

REPORT INFORMATION
  Report Type: 
  Country: None (occurrence: None)
  Receive Date: 20060731
  Receipt Date: 20060420
  Transmission Date: 20061208
  Serious: No
  Sender: FDA-Public Use
  Company Number: 2006PV012392

PATIENT
  Age: 79 Year
  Sex: Male
  Weight: 83.0083 kg

DRUGS (4)
  1. BYETTA [Suspect]
     Indication: DIABETES MELLITUS NON-INSULIN-DEPENDENT
     Dosage: SEE IMAGE
     Route: 058
     Dates: start: 20060317, end: 20060330
  2. BYETTA [Suspect]
     Indication: DIABETES MELLITUS NON-INSULIN-DEPENDENT
     Dosage: SEE IMAGE
     Route: 058
     Dates: start: 20060331
  3. METFORMIN HCL [Concomitant]
  4. LANTUS [Concomitant]

REACTIONS (3)
  - DIZZINESS [None]
  - DYSPNOEA [None]
  - WEIGHT DECREASED [None]
